FAERS Safety Report 5044752-9 (Version None)
Quarter: 2006Q3

REPORT INFORMATION
  Report Type: 
  Country: None (occurrence: None)
  Receive Date: 20060705
  Receipt Date: 20060607
  Transmission Date: 20061208
  Serious: Yes (Other)
  Sender: FDA-Public Use
  Company Number: 2641

PATIENT
  Age: 31 Year
  Sex: Female

DRUGS (3)
  1. AMNESTEEM [Suspect]
     Indication: ACNE
     Dosage: 40MG, BID, PO
     Route: 048
     Dates: start: 20060201, end: 20060605
  2. ETHINYL ESTRADIOL TAB [Concomitant]
  3. NORGESTIMATE [Concomitant]

REACTIONS (4)
  - DRUG DOSE OMISSION [None]
  - DRUG EXPOSURE DURING PREGNANCY [None]
  - PREGNANCY TEST POSITIVE [None]
  - TREATMENT NONCOMPLIANCE [None]
